FAERS Safety Report 9432864 (Version 1)
Quarter: 2013Q3

REPORT INFORMATION
  Report Type: Spontaneous
  Country: BR (occurrence: BR)
  Receive Date: 20130731
  Receipt Date: 20130731
  Transmission Date: 20140515
  Serious: Yes (Other)
  Sender: FDA-Public Use
  Company Number: BR-VERTEX PHARMACEUTICALS INC-2013-008405

PATIENT
  Age: 64 Year
  Sex: Male

DRUGS (3)
  1. INCIVO [Suspect]
     Indication: PRODUCT USED FOR UNKNOWN INDICATION
     Dosage: TABLET
     Route: 065
  2. RIBAVIRIN [Concomitant]
     Dosage: DOSAGE FORM: UNSPECIFIED, 1250
     Route: 065
  3. PEGASYS [Concomitant]
     Dosage: DOSAGE FORM: UNKNOWN
     Route: 065

REACTIONS (3)
  - Dyspnoea [Unknown]
  - Gastrooesophageal reflux disease [Unknown]
  - Hiccups [Unknown]
